FAERS Safety Report 5678498-0 (Version None)
Quarter: 2008Q1

REPORT INFORMATION
  Report Type: 
  Country: None (occurrence: None)
  Receive Date: 20080325
  Receipt Date: 20080321
  Transmission Date: 20080703
  Serious: Yes (Death, Other)
  Sender: FDA-Public Use
  Company Number: JP-BRISTOL-MYERS SQUIBB COMPANY-14097406

PATIENT
  Age: 46 Year
  Sex: Male

DRUGS (1)
  1. CARBIDOPA AND LEVODOPA [Suspect]
     Indication: PARKINSONISM
     Dosage: FORM- TABLET.
     Route: 048

REACTIONS (6)
  - ANXIETY [None]
  - NOCTURNAL DYSPNOEA [None]
  - PARKINSONISM [None]
  - RESPIRATORY FAILURE [None]
  - SEPSIS [None]
  - WEIGHT DECREASED [None]
